FAERS Safety Report 18780288 (Version 2)
Quarter: 2021Q1

REPORT INFORMATION
  Report Type: Report from Study
  Country: BR (occurrence: BR)
  Receive Date: 20210125
  Receipt Date: 20210204
  Transmission Date: 20210419
  Serious: Yes (Other)
  Sender: FDA-Public Use
  Company Number: NVSC2021BR014060

PATIENT
  Age: 80 Year
  Sex: Male

DRUGS (7)
  1. ROSULIB [Suspect]
     Active Substance: ROSUVASTATIN
     Indication: BLOOD CHOLESTEROL
     Dosage: 10 MG  (1 TABLET OF 10 MG) (USED EVERY OTHER DAY)
     Route: 048
     Dates: start: 2004, end: 20201208
  2. SYNTHROID [Concomitant]
     Active Substance: LEVOTHYROXINE SODIUM
     Indication: PRODUCT USED FOR UNKNOWN INDICATION
     Dosage: 1 DF (IN THE MORNING, AFTER PANTOPRAZOLE) (2 YEARS AGO)
     Route: 048
  3. SOMALGIN CARDIO [Concomitant]
     Active Substance: ASPIRIN\DIHYDROXYALUMINUM AMINOACETATE ANHYDROUS\MAGNESIUM CARBONATE
     Indication: ANTICOAGULANT THERAPY
     Dosage: 1 DF (AFTER LUNCH) (STARTED 3 YEARS AGO)
     Route: 048
  4. ROSULIB [Suspect]
     Active Substance: ROSUVASTATIN
     Dosage: 40 MG, QD (2 TABLETS OF 20 MG)
     Route: 048
  5. PANTOPRAZOLE [Concomitant]
     Active Substance: PANTOPRAZOLE
     Indication: PROPHYLAXIS
     Dosage: 1 DF (IN THE MORNING) (2 YEARS AGO)
     Route: 048
  6. GLIFAGE [Concomitant]
     Active Substance: METFORMIN HYDROCHLORIDE
     Indication: GLUCOSE TOLERANCE IMPAIRED
     Dosage: 1 DF (STARTED AFTER 2004)
     Route: 048
  7. ABLOK [Concomitant]
     Active Substance: ATENOLOL
     Indication: PRODUCT USED FOR UNKNOWN INDICATION
     Dosage: 5 MG (MANY YEARS AGO)
     Route: 065
     Dates: end: 20201208

REACTIONS (4)
  - Nervousness [Recovered/Resolved]
  - Depressed mood [Recovered/Resolved]
  - Cerebrovascular accident [Recovered/Resolved]
  - Gastritis [Not Recovered/Not Resolved]

NARRATIVE: CASE EVENT DATE: 20200128
